FAERS Safety Report 25209206 (Version 1)
Quarter: 2025Q2

REPORT INFORMATION
  Report Type: Spontaneous
  Country: JP (occurrence: JP)
  Receive Date: 20250417
  Receipt Date: 20250417
  Transmission Date: 20250716
  Serious: Yes (Hospitalization)
  Sender: PFIZER
  Company Number: JP-PFIZER INC-PV202500042017

PATIENT
  Age: 8 Decade
  Sex: Female

DRUGS (4)
  1. METHOTREXATE SODIUM [Suspect]
     Active Substance: METHOTREXATE SODIUM
     Indication: B-cell lymphoma
  2. RITUXIMAB [Concomitant]
     Active Substance: RITUXIMAB
     Indication: B-cell lymphoma
  3. PROCARBAZINE [Concomitant]
     Active Substance: PROCARBAZINE
     Indication: B-cell lymphoma
  4. VINCRISTINE [Concomitant]
     Active Substance: VINCRISTINE
     Indication: B-cell lymphoma

REACTIONS (3)
  - Acute kidney injury [Recovering/Resolving]
  - Gastrointestinal disorder [Recovering/Resolving]
  - Toxicity to various agents [Recovering/Resolving]
